FAERS Safety Report 23466392 (Version 1)
Quarter: 2024Q1

REPORT INFORMATION
  Report Type: Report from Study
  Country: IQ (occurrence: IQ)
  Receive Date: 20240201
  Receipt Date: 20240201
  Transmission Date: 20240410
  Serious: Yes (Other)
  Sender: FDA-Public Use
  Company Number: IQ-BAYER-2024A016910

PATIENT
  Age: 63 Year
  Sex: Female

DRUGS (2)
  1. EYLEA [Suspect]
     Active Substance: AFLIBERCEPT
     Indication: Diabetic retinal oedema
     Dosage: 6TH DOSE, INJUCT, MONTHLY, BOTH EYE, SOLUTION FOR INJECTION, 40 MG/ML
     Dates: start: 2023, end: 2023
  2. EYLEA [Suspect]
     Active Substance: AFLIBERCEPT
     Dosage: UNK, BOTH EYE, SOLUTION FOR INJECTION, 40 MG/ML
     Dates: start: 2024

REACTIONS (1)
  - Visual impairment [Recovering/Resolving]
